FAERS Safety Report 8879748 (Version 2)
Quarter: 2012Q4

REPORT INFORMATION
  Report Type: 
  Country: IT (occurrence: IT)
  Receive Date: 20121101
  Receipt Date: 20121102
  Transmission Date: 20130627
  Serious: Yes (Hospitalization)
  Sender: FDA-Public Use
  Company Number: IT-BRISTOL-MYERS SQUIBB COMPANY-17074394

PATIENT
  Age: 79 Year
  Sex: Female

DRUGS (5)
  1. COUMADIN TABS 5 MG [Suspect]
     Indication: ATRIAL FIBRILLATION
     Dosage: 1DF: 1dose
     Route: 048
     Dates: start: 20111001, end: 20121019
  2. METOPROLOL TARTRATE [Concomitant]
     Dosage: Metoprololo Tartrato
  3. PAROXETINE [Concomitant]
  4. MYCOSTATIN [Concomitant]
  5. ACEQUIN [Concomitant]

REACTIONS (2)
  - Loss of consciousness [Not Recovered/Not Resolved]
  - International normalised ratio increased [Unknown]
